FAERS Safety Report 8228516-0 (Version None)
Quarter: 2012Q1

REPORT INFORMATION
  Report Type: 
  Country: None (occurrence: None)
  Receive Date: 20120322
  Receipt Date: 20110513
  Transmission Date: 20120608
  Serious: No
  Sender: FDA-Public Use
  Company Number: US-BRISTOL-MYERS SQUIBB COMPANY-15744766

PATIENT
  Age: 79 Year
  Sex: Female

DRUGS (3)
  1. ERBITUX [Suspect]
  2. SYNTHROID [Concomitant]
  3. LOVASTATIN [Concomitant]

REACTIONS (3)
  - CHAPPED LIPS [None]
  - RASH MACULAR [None]
  - TONGUE DISORDER [None]
